FAERS Safety Report 14895475 (Version 1)
Quarter: 2018Q2

REPORT INFORMATION
  Report Type: Spontaneous
  Country: US (occurrence: US)
  Receive Date: 20180515
  Receipt Date: 20180515
  Transmission Date: 20180711
  Serious: Yes (Hospitalization)
  Sender: FDA-Public Use
  Company Number: US-ELI_LILLY_AND_COMPANY-US201805004894

PATIENT
  Age: 69 Year
  Sex: Female
  Weight: 70 kg

DRUGS (8)
  1. ROFECOXIB [Suspect]
     Active Substance: ROFECOXIB
     Indication: ARTHRITIS
     Dosage: 25 MG, DAILY
     Route: 048
     Dates: start: 1999, end: 2001
  2. WARFARIN SODIUM. [Suspect]
     Active Substance: WARFARIN SODIUM
     Indication: PRODUCT USED FOR UNKNOWN INDICATION
     Dosage: UNK UNK, UNKNOWN
     Route: 065
  3. ENOXAPARIN SODIUM. [Suspect]
     Active Substance: ENOXAPARIN SODIUM
     Indication: PRODUCT USED FOR UNKNOWN INDICATION
     Dosage: UNK UNK, UNKNOWN
     Route: 065
  4. FENTANYL. [Suspect]
     Active Substance: FENTANYL
     Indication: PRODUCT USED FOR UNKNOWN INDICATION
     Dosage: UNK UNK, UNKNOWN
     Route: 065
  5. ESTROGENS CONJUGATED [Concomitant]
     Active Substance: ESTROGENS, CONJUGATED
     Indication: PRODUCT USED FOR UNKNOWN INDICATION
     Dosage: UNK UNK, UNKNOWN
     Route: 065
  6. FLUOXETINE HYDROCHLORIDE. [Suspect]
     Active Substance: FLUOXETINE HYDROCHLORIDE
     Indication: PRODUCT USED FOR UNKNOWN INDICATION
     Dosage: UNK UNK, UNKNOWN
     Route: 065
  7. CLONAZEPAM. [Suspect]
     Active Substance: CLONAZEPAM
     Indication: PRODUCT USED FOR UNKNOWN INDICATION
     Dosage: UNK UNK, UNKNOWN
     Route: 065
  8. AMIODARONE [Suspect]
     Active Substance: AMIODARONE
     Indication: PRODUCT USED FOR UNKNOWN INDICATION
     Dosage: UNK UNK, UNKNOWN
     Route: 065

REACTIONS (89)
  - Anaemia postoperative [Unknown]
  - Cardiac valve disease [Unknown]
  - Fall [Unknown]
  - Postpericardiotomy syndrome [Unknown]
  - Depression [Unknown]
  - Coronary artery disease [Unknown]
  - Gout [Unknown]
  - Hyperlipidaemia [Unknown]
  - Deep vein thrombosis [Unknown]
  - Pulmonary fibrosis [Unknown]
  - Insomnia [Unknown]
  - Atrial fibrillation [Unknown]
  - Cardiac failure congestive [Recovered/Resolved]
  - Fall [Unknown]
  - Arthritis [Unknown]
  - Subarachnoid haemorrhage [Unknown]
  - Dehydration [Unknown]
  - Anaemia postoperative [Unknown]
  - Pulmonary embolism [Unknown]
  - Gastrointestinal haemorrhage [Unknown]
  - Hypotension [Unknown]
  - Craniocerebral injury [Unknown]
  - Neuropathy peripheral [Unknown]
  - Limb discomfort [Unknown]
  - Rotator cuff syndrome [Unknown]
  - Pleural effusion [Unknown]
  - Hypertension [Unknown]
  - Hyperlipidaemia [Unknown]
  - Coronary artery disease [Unknown]
  - Autoimmune hepatitis [Unknown]
  - Arthropathy [Unknown]
  - Chronic obstructive pulmonary disease [Unknown]
  - Dyspnoea [Unknown]
  - Atelectasis [Unknown]
  - Acute coronary syndrome [Unknown]
  - Anaemia [Unknown]
  - Bradycardia [Unknown]
  - Chest injury [Unknown]
  - Tendonitis [Unknown]
  - Pericardial effusion [Unknown]
  - Hypertension [Unknown]
  - Gout [Unknown]
  - Coagulopathy [Unknown]
  - Movement disorder [Recovered/Resolved]
  - Coagulation time prolonged [Unknown]
  - Petechiae [Unknown]
  - Weight decreased [Unknown]
  - Chronic kidney disease [Unknown]
  - Fall [Unknown]
  - Fall [Unknown]
  - Parotitis [Unknown]
  - Arthritis bacterial [Unknown]
  - Thrombosis [Unknown]
  - Syncope [Unknown]
  - Hypertension [Unknown]
  - Lymphadenopathy [Unknown]
  - Sialoadenitis [Unknown]
  - Vaginal haemorrhage [Unknown]
  - Acute myocardial infarction [Unknown]
  - Anaemia [Unknown]
  - Cholelithiasis [Unknown]
  - Mitral valve incompetence [Unknown]
  - Left ventricular dysfunction [Unknown]
  - Retroperitoneal haemorrhage [Unknown]
  - Angina pectoris [Unknown]
  - Renal cyst [Unknown]
  - Renal failure [Unknown]
  - Dysphagia [Unknown]
  - Cellulitis [Unknown]
  - Cholecystitis infective [Unknown]
  - Fall [Unknown]
  - Infection [Unknown]
  - Sepsis [Unknown]
  - Pulmonary toxicity [Unknown]
  - Hyperglycaemia [Unknown]
  - Renal failure [Unknown]
  - Atrial fibrillation [Unknown]
  - Chest pain [Unknown]
  - Chest pain [Unknown]
  - Ligament sprain [Unknown]
  - Joint effusion [Unknown]
  - Adjustment disorder with depressed mood [Unknown]
  - Atrial fibrillation [Recovered/Resolved]
  - Parotitis [Unknown]
  - Head injury [Unknown]
  - Coronary artery disease [Unknown]
  - Asthma [Unknown]
  - Urinary tract infection [Unknown]
  - Vomiting [Unknown]

NARRATIVE: CASE EVENT DATE: 200101
